FAERS Safety Report 5640752-6 (Version None)
Quarter: 2008Q1

REPORT INFORMATION
  Report Type: 
  Country: None (occurrence: None)
  Receive Date: 20080225
  Receipt Date: 20080124
  Transmission Date: 20080703
  Serious: Yes (Hospitalization)
  Sender: FDA-Public Use
  Company Number: 2008VX000216

PATIENT
  Sex: Male

DRUGS (1)
  1. EFUDEX [Suspect]
     Indication: PENILE WART

REACTIONS (1)
  - PENIS DISORDER [None]
